FAERS Safety Report 16623056 (Version 1)
Quarter: 2019Q3

REPORT INFORMATION
  Report Type: Spontaneous
  Country: GR (occurrence: GR)
  Receive Date: 20190724
  Receipt Date: 20190724
  Transmission Date: 20191004
  Serious: Yes (Hospitalization)
  Sender: FDA-Public Use
  Company Number: GR-CELLTRION INC.-2019GR022787

PATIENT

DRUGS (2)
  1. INFLIXIMAB (UNKNOWN) [Suspect]
     Active Substance: INFLIXIMAB
     Indication: AUTOIMMUNE COLITIS
     Dosage: UNK
     Route: 065
  2. NIVOLUMAB [Concomitant]
     Active Substance: NIVOLUMAB
     Indication: MALIGNANT MELANOMA
     Dosage: UNK
     Route: 065

REACTIONS (4)
  - Pulmonary tuberculosis [Unknown]
  - Pyrexia [Unknown]
  - Lung disorder [Unknown]
  - Asthenia [Unknown]
